FAERS Safety Report 17684829 (Version 4)
Quarter: 2020Q2

REPORT INFORMATION
  Report Type: Spontaneous
  Country: BG (occurrence: BG)
  Receive Date: 20200420
  Receipt Date: 20200630
  Transmission Date: 20200714
  Serious: Yes (Other)
  Sender: FDA-Public Use
  Company Number: BG-009507513-2004BGR004250

PATIENT
  Age: 54 Year
  Sex: Female
  Weight: 50 kg

DRUGS (4)
  1. KEYTRUDA [Suspect]
     Active Substance: PEMBROLIZUMAB
     Dosage: 2 UNK
     Route: 041
     Dates: start: 20200505
  2. KEYTRUDA [Suspect]
     Active Substance: PEMBROLIZUMAB
     Indication: OLIGODENDROGLIOMA
     Dosage: STRENGTH: 2MG/KG
     Dates: start: 20200414
  3. TEMOZOLOMIDE. [Suspect]
     Active Substance: TEMOZOLOMIDE
     Indication: OLIGODENDROGLIOMA
     Dosage: UNK
  4. KEYTRUDA [Suspect]
     Active Substance: PEMBROLIZUMAB
     Dosage: UNK
     Dates: start: 20200527

REACTIONS (4)
  - Nausea [Unknown]
  - Brain oedema [Unknown]
  - Oligodendroglioma [Unknown]
  - Off label use [Unknown]

NARRATIVE: CASE EVENT DATE: 2017
